FAERS Safety Report 16007491 (Version 1)
Quarter: 2019Q1

REPORT INFORMATION
  Report Type: Spontaneous
  Country: US (occurrence: US)
  Receive Date: 20190226
  Receipt Date: 20190226
  Transmission Date: 20190418
  Serious: No
  Sender: FDA-Public Use
  Company Number: US-IGSA-SR10007453

PATIENT
  Age: 62 Year
  Sex: Female
  Weight: 58 kg

DRUGS (15)
  1. VENTOLIN [Concomitant]
     Active Substance: ALBUTEROL SULFATE
  2. PROTONIX                           /00661201/ [Concomitant]
     Active Substance: OMEPRAZOLE
  3. PROLASTIN-C [Suspect]
     Active Substance: .ALPHA.1-PROTEINASE INHIBITOR HUMAN
     Dosage: UNK UNK, Q.WK.
     Route: 042
     Dates: start: 20150701
  4. ALBUTEROL                          /00139501/ [Concomitant]
     Active Substance: ALBUTEROL
  5. MONTELUKAST [Concomitant]
     Active Substance: MONTELUKAST SODIUM
  6. PROLASTIN-C [Suspect]
     Active Substance: .ALPHA.1-PROTEINASE INHIBITOR HUMAN
     Indication: ALPHA-1 ANTI-TRYPSIN DEFICIENCY
     Dosage: 3480 MG, Q.WK.
     Route: 042
     Dates: start: 20181130
  7. SPIRIVA [Concomitant]
     Active Substance: TIOTROPIUM BROMIDE MONOHYDRATE
  8. SPIRONOLACTONE. [Concomitant]
     Active Substance: SPIRONOLACTONE
  9. BUDESONIDE. [Concomitant]
     Active Substance: BUDESONIDE
  10. PERFOROMIST [Concomitant]
     Active Substance: FORMOTEROL FUMARATE DIHYDRATE
  11. PRAVACHOL [Concomitant]
     Active Substance: PRAVASTATIN SODIUM
  12. PREDNISONE. [Concomitant]
     Active Substance: PREDNISONE
  13. ASPIRIN                            /00002701/ [Concomitant]
     Active Substance: ASPIRIN
  14. GABAPENTIN. [Concomitant]
     Active Substance: GABAPENTIN
  15. HYDROCODONE BITARTRATE AND ACETAMINOPHEN [Concomitant]
     Active Substance: ACETAMINOPHEN\HYDROCODONE BITARTRATE

REACTIONS (2)
  - Medication error [Recovered/Resolved]
  - Headache [Not Recovered/Not Resolved]

NARRATIVE: CASE EVENT DATE: 20181130
